FAERS Safety Report 4641352-7 (Version None)
Quarter: 2005Q2

REPORT INFORMATION
  Report Type: 
  Country: None (occurrence: None)
  Receive Date: 20050419
  Receipt Date: 20050406
  Transmission Date: 20051028
  Serious: Yes (Death, Hospitalization)
  Sender: FDA-Public Use
  Company Number: 04P-083-0275777-00

PATIENT
  Age: 64 Year
  Sex: Male
  Weight: 95 kg

DRUGS (11)
  1. HUMIRA [Suspect]
     Indication: RHEUMATOID ARTHRITIS
     Dosage: 40 MG, 1 IN 2 WK, SUBCUTANEOUS
     Route: 058
     Dates: start: 20030523, end: 20040720
  2. SULFASALAZINE [Concomitant]
  3. HYDROXYCHLOROQUINE PHOSPHATE [Concomitant]
  4. METHOTREXATE [Concomitant]
  5. LEFLUNOMIDE [Concomitant]
  6. CELECOXIB [Concomitant]
  7. METHYLPREDNISOLONE [Concomitant]
  8. COLCHICINE [Concomitant]
  9. RABEPRAZOLE SODIUM [Concomitant]
  10. AMOXOCILLIN TRIHYDRATE [Concomitant]
  11. COMMERCIAL HUMIRA [Concomitant]

REACTIONS (12)
  - ARTHRALGIA [None]
  - BRONCHOPNEUMONIA [None]
  - CARDIAC MURMUR [None]
  - DRUG INEFFECTIVE [None]
  - DYSSTASIA [None]
  - LUNG CREPITATION [None]
  - LUNG DISORDER [None]
  - MEDICAL DEVICE COMPLICATION [None]
  - OEDEMA PERIPHERAL [None]
  - SEPSIS [None]
  - SKIN ULCER [None]
  - TENDERNESS [None]
